FAERS Safety Report 12294179 (Version 1)
Quarter: 2016Q2

REPORT INFORMATION
  Report Type: Spontaneous
  Country: US (occurrence: US)
  Receive Date: 20160422
  Receipt Date: 20160422
  Transmission Date: 20160815
  Serious: Yes (Hospitalization, Other)
  Sender: FDA-Public Use
  Company Number: US-BEH-2016061349

PATIENT
  Age: 56 Year
  Sex: Female
  Weight: 60.4 kg

DRUGS (32)
  1. BUTALBITAL/APA/CAFFE [Concomitant]
  2. SINGULAIR [Concomitant]
     Active Substance: MONTELUKAST SODIUM
  3. BIOTIN [Concomitant]
     Active Substance: BIOTIN
  4. ZYRTEC [Concomitant]
     Active Substance: CETIRIZINE HYDROCHLORIDE
  5. FOLIC ACID. [Concomitant]
     Active Substance: FOLIC ACID
  6. OMEPRAZOLE. [Concomitant]
     Active Substance: OMEPRAZOLE
  7. FUROSEMIDE. [Concomitant]
     Active Substance: FUROSEMIDE
  8. SUMATRIPTAN SUCCINATE. [Concomitant]
     Active Substance: SUMATRIPTAN SUCCINATE
  9. PATADAY [Concomitant]
     Active Substance: OLOPATADINE HYDROCHLORIDE
  10. FAMOTIDINE. [Concomitant]
     Active Substance: FAMOTIDINE
  11. HYDROCORTISONE. [Concomitant]
     Active Substance: HYDROCORTISONE
  12. NASACORT [Concomitant]
     Active Substance: TRIAMCINOLONE ACETONIDE
  13. PRENATAL [Concomitant]
     Active Substance: VITAMINS
  14. VESICARE [Concomitant]
     Active Substance: SOLIFENACIN SUCCINATE
  15. NORCO [Concomitant]
     Active Substance: ACETAMINOPHEN\HYDROCODONE BITARTRATE
  16. PROAIR HFA [Concomitant]
     Active Substance: ALBUTEROL SULFATE
  17. HIZENTRA [Suspect]
     Active Substance: HUMAN IMMUNOGLOBULIN G
  18. HIZENTRA [Suspect]
     Active Substance: HUMAN IMMUNOGLOBULIN G
     Route: 058
     Dates: start: 20150422
  19. DIAZEPAM. [Concomitant]
     Active Substance: DIAZEPAM
  20. QVAR [Concomitant]
     Active Substance: BECLOMETHASONE DIPROPIONATE
  21. VITAMIN B COMPLEX [Concomitant]
     Active Substance: CYANOCOBALAMIN\DEXPANTHENOL\NIACINAMIDE\PYRIDOXINE HYDROCHLORIDE\RIBOFLAVIN 5^-PHOSPHATE SODIUM\THIAMINE HYDROCHLORIDE\VITAMIN B COMPLEX
  22. BETAMETHASONE. [Concomitant]
     Active Substance: BETAMETHASONE
  23. ASPIRIN EC [Concomitant]
     Active Substance: ASPIRIN
  24. TUSSIN [Concomitant]
     Active Substance: GUAIFENESIN
  25. CULTURELLE [Concomitant]
     Active Substance: LACTOBACILLUS RHAMNOSUS
  26. NAPROXEN. [Concomitant]
     Active Substance: NAPROXEN
  27. SYMBICORT [Concomitant]
     Active Substance: BUDESONIDE\FORMOTEROL FUMARATE DIHYDRATE
  28. BENADRYL [Concomitant]
     Active Substance: DIPHENHYDRAMINE HYDROCHLORIDE
  29. NITROLINGUAL [Concomitant]
     Active Substance: NITROGLYCERIN
  30. HIZENTRA [Suspect]
     Active Substance: HUMAN IMMUNOGLOBULIN G
     Indication: IMMUNODEFICIENCY COMMON VARIABLE
  31. OMEGA-3 FISH OIL [Concomitant]
     Active Substance: FISH OIL\OMEGA-3 FATTY ACIDS
  32. FLORASTOR [Concomitant]
     Active Substance: SACCHAROMYCES CEREVISIAE

REACTIONS (1)
  - Spinal operation [Unknown]

NARRATIVE: CASE EVENT DATE: 20160329
